FAERS Safety Report 6079771-7 (Version None)
Quarter: 2009Q1

REPORT INFORMATION
  Report Type: 
  Country: None (occurrence: None)
  Receive Date: 20090217
  Receipt Date: 20090206
  Transmission Date: 20090719
  Serious: Yes (Hospitalization)
  Sender: FDA-Public Use
  Company Number: DE-BAYER-200913077GPV

PATIENT
  Sex: Female

DRUGS (1)
  1. MIRENA [Suspect]
     Indication: CONTRACEPTION
     Route: 015
     Dates: start: 20040518, end: 20080408

REACTIONS (6)
  - ADJUSTMENT DISORDER [None]
  - ASTHENIA [None]
  - DEPRESSED MOOD [None]
  - FATIGUE [None]
  - MOOD ALTERED [None]
  - PANIC ATTACK [None]
